FAERS Safety Report 7609213-9 (Version None)
Quarter: 2011Q3

REPORT INFORMATION
  Report Type: 
  Country: None (occurrence: None)
  Receive Date: 20110713
  Receipt Date: 20110713
  Transmission Date: 20111222
  Serious: Yes (Other)
  Sender: FDA-Public Use
  Company Number: None

PATIENT
  Age: 59 Year
  Sex: Female
  Weight: 74.8435 kg

DRUGS (15)
  1. PILOCARPINE [Concomitant]
  2. OMEPRAZOLE [Concomitant]
  3. CYCLOBENSAPRINE [Concomitant]
  4. SIMVASTATIN [Concomitant]
  5. REMICADE [Concomitant]
  6. SEROQUEL [Concomitant]
  7. LORAZEPAM [Concomitant]
  8. VERAPAMIL [Concomitant]
  9. CYMBALTA [Concomitant]
  10. AZITHROMYCIN [Suspect]
     Indication: UPPER RESPIRATORY TRACT INFECTION
     Dosage: 250 MG DAILY PO
     Route: 048
     Dates: start: 20110511, end: 20110515
  11. AZITHROMYCIN [Suspect]
     Indication: BRONCHITIS
     Dosage: 250 MG DAILY PO
     Route: 048
     Dates: start: 20110511, end: 20110515
  12. SYNTHROID [Concomitant]
  13. LEFLUNOMIDE [Concomitant]
  14. ASACOL [Concomitant]
  15. FOLIC ACID [Concomitant]

REACTIONS (3)
  - SKIN EXFOLIATION [None]
  - ANOSMIA [None]
  - AGEUSIA [None]
